FAERS Safety Report 4869937-3 (Version None)
Quarter: 2005Q4

REPORT INFORMATION
  Report Type: 
  Country: None (occurrence: None)
  Receive Date: 20051230
  Receipt Date: 20051220
  Transmission Date: 20060501
  Serious: Yes (Hospitalization, Other)
  Sender: FDA-Public Use
  Company Number: US-MERCK-0512USA03548

PATIENT
  Age: 51 Year
  Sex: Male
  Weight: 100 kg

DRUGS (9)
  1. VIOXX [Suspect]
     Indication: ARTHRITIS
     Route: 048
     Dates: start: 20000609, end: 20020201
  2. GLUCOTROL [Concomitant]
     Route: 065
  3. LIPITOR [Concomitant]
     Route: 065
  4. PLAVIX [Concomitant]
     Route: 065
  5. CARDURA [Concomitant]
     Route: 065
  6. PEPCID [Concomitant]
     Route: 065
  7. STARIL [Concomitant]
     Route: 065
  8. NEXIUM [Concomitant]
     Route: 065
  9. ECOTRIN [Concomitant]
     Route: 065

REACTIONS (10)
  - ARTHRALGIA [None]
  - BACK PAIN [None]
  - CEREBROVASCULAR ACCIDENT [None]
  - DEPRESSION [None]
  - DILATATION ATRIAL [None]
  - FALL [None]
  - MITRAL VALVE INCOMPETENCE [None]
  - TRANSIENT ISCHAEMIC ATTACK [None]
  - VENTRICULAR HYPERTROPHY [None]
  - WRIST FRACTURE [None]
